FAERS Safety Report 8776261 (Version 1)
Quarter: 2012Q4

REPORT INFORMATION
  Report Type: 
  Country: US (occurrence: US)
  Receive Date: 20120910
  Receipt Date: 20120910
  Transmission Date: 20130627
  Serious: Yes (Disabling)
  Sender: FDA-Public Use
  Company Number: US-009507513-1209USA001981

PATIENT

DRUGS (2)
  1. VICTRELIS [Suspect]
     Indication: HEPATITIS C
     Dosage: 800 mg, q8h
     Route: 048
     Dates: start: 20120716, end: 20120721
  2. PROZAC [Concomitant]

REACTIONS (12)
  - Suicidal ideation [Recovering/Resolving]
  - Influenza like illness [Recovering/Resolving]
  - Nausea [Recovering/Resolving]
  - Rash [Recovering/Resolving]
  - Headache [Recovering/Resolving]
  - Diarrhoea [Recovering/Resolving]
  - Dysphagia [Recovering/Resolving]
  - Decreased appetite [Recovering/Resolving]
  - Sinus headache [Recovering/Resolving]
  - Pruritus [Recovering/Resolving]
  - Abnormal faeces [Recovering/Resolving]
  - Drug ineffective [Unknown]
